FAERS Safety Report 24570708 (Version 11)
Quarter: 2025Q2

REPORT INFORMATION
  Report Type: Report from Study
  Country: DE (occurrence: DE)
  Receive Date: 20241031
  Receipt Date: 20250619
  Transmission Date: 20250717
  Serious: Yes (Life-Threatening, Hospitalization, Disabling, Other)
  Sender: TAKEDA
  Company Number: DE-TAKEDA-2024TUS094171

PATIENT
  Age: 72 Year
  Sex: Female

DRUGS (13)
  1. TEDUGLUTIDE [Suspect]
     Active Substance: TEDUGLUTIDE
     Indication: Short-bowel syndrome
     Dosage: 1.8 MILLIGRAM, QD
     Dates: start: 20150724, end: 20190501
  2. TEDUGLUTIDE [Suspect]
     Active Substance: TEDUGLUTIDE
     Dosage: 1.8 MILLIGRAM, 3/WEEK
     Dates: start: 20190523, end: 20210810
  3. TEDUGLUTIDE [Suspect]
     Active Substance: TEDUGLUTIDE
     Dosage: 1.5 MILLIGRAM, 2/WEEK
     Dates: start: 20210811
  4. TEDUGLUTIDE [Suspect]
     Active Substance: TEDUGLUTIDE
  5. EFEROX [Concomitant]
     Active Substance: LEVOTHYROXINE SODIUM
     Indication: Hypothyroidism
     Dosage: 50 MICROGRAM, QD
     Dates: start: 2009
  6. TACROLIMUS [Concomitant]
     Active Substance: TACROLIMUS
     Indication: Immunosuppression
     Dosage: 3.8 MILLIGRAM, TID
     Dates: start: 2014
  7. URSODIOL [Concomitant]
     Active Substance: URSODIOL
     Indication: Bile acids abnormal
     Dosage: 500 MILLIGRAM, BID
     Dates: start: 20210223
  8. ERYTHROPOIETIN [Concomitant]
     Active Substance: ERYTHROPOIETIN
     Indication: Fatigue
     Dosage: 500 INTERNATIONAL UNIT, 3/WEEK
     Dates: start: 20210223
  9. CHOLECALCIFEROL [Concomitant]
     Active Substance: CHOLECALCIFEROL
     Indication: Vitamin D deficiency
     Dosage: 20000 INTERNATIONAL UNIT, 2/MONTH
     Dates: start: 20210223
  10. ALFACALCIDOL [Concomitant]
     Active Substance: ALFACALCIDOL
     Indication: Osteoporosis
     Dosage: 5 GTT DROPS, QD
     Dates: start: 20210223
  11. FERRLECIT [Concomitant]
     Active Substance: SODIUM FERRIC GLUCONATE COMPLEX
     Indication: Iron deficiency
  12. PANCRELIPASE [Concomitant]
     Active Substance: PANCRELIPASE
     Indication: Pancreatic failure
     Dosage: 25000 INTERNATIONAL UNIT, TID
  13. Mucofalk [Concomitant]
     Indication: Diarrhoea
     Dosage: 99 MILLIGRAM, BID

REACTIONS (12)
  - Anaemia [Recovered/Resolved]
  - Vaginal haemorrhage [Recovered/Resolved]
  - Pancytopenia [Not Recovered/Not Resolved]
  - Gastric ulcer [Not Recovered/Not Resolved]
  - Blood bilirubin increased [Not Recovered/Not Resolved]
  - Breast oedema [Recovered/Resolved]
  - Vitamin B12 increased [Not Recovered/Not Resolved]
  - Blood copper increased [Not Recovered/Not Resolved]
  - Dysphagia [Recovered/Resolved]
  - Duodenitis [Not Recovered/Not Resolved]
  - Tachycardia [Recovered/Resolved]
  - Dizziness [Recovered/Resolved]

NARRATIVE: CASE EVENT DATE: 20240601
